FAERS Safety Report 9815237 (Version 1)
Quarter: 2014Q1

REPORT INFORMATION
  Report Type: Report from Study
  Country: US (occurrence: US)
  Receive Date: 20140114
  Receipt Date: 20140114
  Transmission Date: 20141002
  Serious: Yes (Other)
  Sender: FDA-Public Use
  Company Number: US-ROCHE-1326948

PATIENT
  Sex: Female

DRUGS (23)
  1. LUCENTIS [Suspect]
     Indication: DIABETIC RETINAL OEDEMA
     Route: 050
     Dates: start: 20100408
  2. LUCENTIS [Suspect]
     Route: 050
     Dates: start: 20100617
  3. LUCENTIS [Suspect]
     Route: 050
     Dates: start: 20100826
  4. LUCENTIS [Suspect]
     Route: 050
     Dates: start: 20101114
  5. LUCENTIS [Suspect]
     Route: 050
     Dates: start: 20110113
  6. LUCENTIS [Suspect]
     Route: 050
     Dates: start: 20110324
  7. LUCENTIS [Suspect]
     Route: 050
     Dates: start: 20110602
  8. LUCENTIS [Suspect]
     Route: 050
     Dates: start: 20110811
  9. AVASTIN [Suspect]
     Indication: PRODUCT USED FOR UNKNOWN INDICATION
     Route: 065
     Dates: start: 20080612
  10. PRED FORTE [Concomitant]
     Dosage: OD
     Route: 065
  11. OXYBUTYNIN CHLORIDE [Concomitant]
  12. ACTOS [Concomitant]
  13. ASA [Concomitant]
     Route: 065
  14. EFFEXOR XR [Concomitant]
  15. METFORMIN HCL [Concomitant]
  16. DIOVAN HCT [Concomitant]
  17. GEMFIBROZIL [Concomitant]
  18. SIMVASTATIN [Concomitant]
  19. DIPYRIDAMOLE [Concomitant]
  20. ALREX [Concomitant]
     Dosage: OU
     Route: 065
  21. MURO 128 [Concomitant]
     Dosage: 5% SOLUTION OU
     Route: 065
  22. OMEPRAZOLE [Concomitant]
  23. ALPRAZOLAM [Concomitant]

REACTIONS (11)
  - Conjunctivitis allergic [Unknown]
  - Cystoid macular oedema [Unknown]
  - Presumed ocular histoplasmosis syndrome [Unknown]
  - Deafness [Unknown]
  - Dyspnoea [Unknown]
  - Vision blurred [Unknown]
  - Visual acuity reduced [Unknown]
  - Visual impairment [Unknown]
  - Vitreous floaters [Unknown]
  - Subretinal fluid [Unknown]
  - Retinal degeneration [Unknown]
